FAERS Safety Report 5752313-9 (Version None)
Quarter: 2008Q2

REPORT INFORMATION
  Report Type: 
  Country: None (occurrence: None)
  Receive Date: 20080529
  Receipt Date: 20080521
  Transmission Date: 20081010
  Serious: Yes (Life-Threatening, Hospitalization, Other)
  Sender: FDA-Public Use
  Company Number: DE-AMGEN-UK144415

PATIENT
  Sex: Female
  Weight: 46 kg

DRUGS (18)
  1. MIMPARA [Suspect]
     Indication: HYPERPARATHYROIDISM SECONDARY
     Route: 048
     Dates: start: 20050202
  2. MIMPARA [Suspect]
     Route: 048
  3. ASPIRIN [Suspect]
     Route: 065
  4. NICOTINE [Suspect]
     Route: 065
  5. PANTOPRAZOLE SODIUM [Concomitant]
     Route: 065
  6. CALCIUM ACETATE [Concomitant]
     Route: 065
  7. CALCIUM POLYSTYRENE SULFONATE [Concomitant]
  8. DREISAVIT N [Concomitant]
  9. ALFACALCIDOL [Concomitant]
  10. ENALAPRIL MALEATE [Concomitant]
  11. METOCLOPRAMIDE [Concomitant]
  12. FERRLECIT [Concomitant]
  13. LACTULOSE [Concomitant]
  14. NEORECORMON [Concomitant]
  15. NEXIUM [Concomitant]
  16. PRAVASTATIN [Concomitant]
  17. RENAGEL [Concomitant]
  18. VALORON N [Concomitant]

REACTIONS (5)
  - ANGIODYSPLASIA [None]
  - GASTRIC HAEMORRHAGE [None]
  - GASTRIC ULCER [None]
  - HAEMOGLOBIN DECREASED [None]
  - MELAENA [None]
